FAERS Safety Report 7543850-5 (Version None)
Quarter: 2011Q2

REPORT INFORMATION
  Report Type: 
  Country: None (occurrence: None)
  Receive Date: 20110613
  Receipt Date: 20110609
  Transmission Date: 20111010
  Serious: Yes (Death, Hospitalization)
  Sender: FDA-Public Use
  Company Number: CA-B.I. PHARMACEUTICALS,INC./RIDGEFIELD-2011-CN-00730CN

PATIENT
  Age: 89 Year
  Sex: Male

DRUGS (4)
  1. LIPITOR [Concomitant]
  2. PRADAXA [Suspect]
     Indication: ATRIAL FIBRILLATION
     Dosage: 220 MG
     Dates: start: 20110401, end: 20110421
  3. RANITIDINE [Concomitant]
  4. LUMIGAN [Concomitant]

REACTIONS (3)
  - SWELLING [None]
  - CARDIAC FAILURE [None]
  - GENERALISED OEDEMA [None]
